FAERS Safety Report 4693840-5 (Version None)
Quarter: 2005Q2

REPORT INFORMATION
  Report Type: 
  Country: None (occurrence: None)
  Receive Date: 20050616
  Receipt Date: 20050606
  Transmission Date: 20051028
  Serious: Yes (Other)
  Sender: FDA-Public Use
  Company Number: 2005085670

PATIENT
  Age: 84 Year
  Sex: Female

DRUGS (6)
  1. DIFLUCAN [Suspect]
     Indication: ILL-DEFINED DISORDER
     Dosage: 100 MG (DAILY)
     Dates: start: 20050601
  2. PREDONIDE (PREDNISOLONE) [Concomitant]
  3. MUCOSTA (REBAMIPIDE) [Concomitant]
  4. MUCODYNE  (CARBOCISTEINE) [Concomitant]
  5. CLARITHROMYCIN [Concomitant]
  6. ALFAROL (ALFACALCIDOL) [Concomitant]

REACTIONS (1)
  - PLATELET COUNT DECREASED [None]
